FAERS Safety Report 22140422 (Version 1)
Quarter: 2023Q1

REPORT INFORMATION
  Report Type: Spontaneous
  Country: FR (occurrence: FR)
  Receive Date: 20230327
  Receipt Date: 20230327
  Transmission Date: 20230418
  Serious: Yes (Other)
  Sender: FDA-Public Use
  Company Number: None

PATIENT
  Age: 66 Year
  Sex: Male
  Weight: 161 kg

DRUGS (1)
  1. CIPROFLOXACIN [Suspect]
     Active Substance: CIPROFLOXACIN
     Indication: Postoperative wound infection
     Dosage: 400MG/J
     Route: 042
     Dates: start: 20221228, end: 20230117

REACTIONS (2)
  - Rash [Recovered/Resolved]
  - Hypereosinophilic syndrome [Recovering/Resolving]

NARRATIVE: CASE EVENT DATE: 20230115
